FAERS Safety Report 14186443 (Version 2)
Quarter: 2017Q4

REPORT INFORMATION
  Report Type: Spontaneous
  Country: RU (occurrence: RU)
  Receive Date: 20171114
  Receipt Date: 20171123
  Transmission Date: 20180321
  Serious: Yes (Other)
  Sender: FDA-Public Use
  Company Number: RU-ASTRAZENECA-2017SF15156

PATIENT
  Age: 55 Year
  Sex: Male
  Weight: 62 kg

DRUGS (2)
  1. BRILINTA [Suspect]
     Active Substance: TICAGRELOR
     Indication: MYOCARDIAL INFARCTION
     Route: 048
     Dates: start: 20170325, end: 20170805
  2. THROMBO ASS [Concomitant]
     Active Substance: ASPIRIN

REACTIONS (5)
  - Renal cancer stage IV [Not Recovered/Not Resolved]
  - Metastasis [Unknown]
  - Malignant neoplasm progression [Unknown]
  - Haematuria [Recovered/Resolved]
  - Metastases to lung [Unknown]

NARRATIVE: CASE EVENT DATE: 201708
